FAERS Safety Report 7309251-X (Version None)
Quarter: 2011Q1

REPORT INFORMATION
  Report Type: 
  Country: None (occurrence: None)
  Receive Date: 20110223
  Receipt Date: 20110218
  Transmission Date: 20110831
  Serious: Yes (Death)
  Sender: FDA-Public Use
  Company Number: US-ROCHE-735244

PATIENT
  Sex: Female
  Weight: 75.3 kg

DRUGS (10)
  1. LOTREL [Concomitant]
     Indication: HYPERTENSION
     Dosage: DOSE: 5/10 MCG
     Route: 048
     Dates: start: 19990101
  2. ASPIRIN [Concomitant]
     Route: 048
     Dates: start: 19900101
  3. ZOLOFT [Concomitant]
     Indication: DEPRESSION
     Route: 048
     Dates: start: 20090101
  4. LEVOTHYROXINE SODIUM [Concomitant]
     Indication: HYPOTHYROIDISM
     Route: 048
     Dates: start: 19800101
  5. BEVACIZUMAB [Suspect]
     Indication: MENINGIOMA
     Dosage: PERMANENTLY DISCONTINUED
     Route: 065
     Dates: start: 20100521
  6. COMPAZINE [Concomitant]
     Indication: VOMITING
     Dosage: FREQUENCY:Q4-6
     Route: 048
     Dates: start: 20100521
  7. NOVOLOG [Concomitant]
     Dosage: DOSE: 25 UNITS
     Route: 058
     Dates: start: 19800101
  8. EVEROLIMUS [Suspect]
     Indication: MENINGIOMA
     Dosage: PERMANENTALY DISCONTINUED
     Route: 065
     Dates: start: 20100521
  9. LASIX [Concomitant]
     Route: 048
     Dates: start: 20100101
  10. VERAPAMIL [Concomitant]
     Indication: HYPERTENSION
     Route: 048
     Dates: start: 19900101

REACTIONS (1)
  - DISEASE PROGRESSION [None]
